FAERS Safety Report 20313696 (Version 1)
Quarter: 2022Q1

REPORT INFORMATION
  Report Type: Spontaneous
  Country: US (occurrence: US)
  Receive Date: 20220109
  Receipt Date: 20220109
  Transmission Date: 20220424
  Serious: No
  Sender: FDA-Public Use
  Company Number: US-SA-SAC20211231000826

PATIENT
  Sex: Male

DRUGS (6)
  1. DUPIXENT [Suspect]
     Active Substance: DUPILUMAB
     Indication: Dermatitis atopic
     Dosage: 300 MG, QOW
     Route: 058
     Dates: start: 20211019
  2. BRIMONIDINE [Concomitant]
     Active Substance: BRIMONIDINE TARTRATE
  3. DORZOLAMIDE HYDROCHLORIDE\TIMOLOL MALEATE [Concomitant]
     Active Substance: DORZOLAMIDE HYDROCHLORIDE\TIMOLOL MALEATE
  4. LUMIGAN [Concomitant]
     Active Substance: BIMATOPROST
  5. RHOPRESSA [Concomitant]
     Active Substance: NETARSUDIL MESYLATE
  6. SYNTHROID [Concomitant]
     Active Substance: LEVOTHYROXINE SODIUM

REACTIONS (1)
  - Dermatitis atopic [Recovering/Resolving]
